FAERS Safety Report 16195975 (Version 2)
Quarter: 2019Q4

REPORT INFORMATION
  Report Type: Spontaneous
  Country: US (occurrence: US)
  Receive Date: 20190415
  Receipt Date: 20191009
  Transmission Date: 20200122
  Serious: Yes (Death, Other)
  Sender: FDA-Public Use
  Company Number: US-SUN PHARMACEUTICAL INDUSTRIES LTD-2019R1-205206

PATIENT
  Age: 65 Year
  Sex: Female

DRUGS (2)
  1. METHOTREXATE. [Suspect]
     Active Substance: METHOTREXATE
     Indication: RHEUMATOID ARTHRITIS
     Dosage: LOW DOSE
     Route: 065
  2. FOLIC ACID. [Concomitant]
     Active Substance: FOLIC ACID
     Indication: RHEUMATOID ARTHRITIS
     Dosage: UNK
     Route: 065

REACTIONS (12)
  - Staphylococcal infection [Unknown]
  - Multiple organ dysfunction syndrome [Fatal]
  - Oxygen saturation decreased [Unknown]
  - Pyrexia [Unknown]
  - Hypotension [Unknown]
  - Dyspnoea [Unknown]
  - Acute kidney injury [Unknown]
  - Hypoxia [Unknown]
  - Pancytopenia [Fatal]
  - Toxicity to various agents [Unknown]
  - Ulcer haemorrhage [Unknown]
  - Angiogram pulmonary abnormal [Unknown]
